FAERS Safety Report 17640132 (Version 3)
Quarter: 2020Q2

REPORT INFORMATION
  Report Type: Report from Study
  Country: None (occurrence: CO)
  Receive Date: 20200408
  Receipt Date: 20200504
  Transmission Date: 20200713
  Serious: Yes (Death, Hospitalization)
  Sender: FDA-Public Use
  Company Number: CO-ABBVIE-20K-036-3354016-00

PATIENT
  Age: 64 Year
  Sex: Male
  Weight: 78 kg

DRUGS (2)
  1. IMBRUVICA [Suspect]
     Active Substance: IBRUTINIB
     Route: 048
     Dates: start: 20180429, end: 20200428
  2. IMBRUVICA [Suspect]
     Active Substance: IBRUTINIB
     Indication: CHRONIC LYMPHOCYTIC LEUKAEMIA
     Route: 048
     Dates: start: 20180414, end: 20180420

REACTIONS (9)
  - Disturbance in attention [Fatal]
  - Headache [Not Recovered/Not Resolved]
  - Neoplasm [Fatal]
  - Death [Fatal]
  - Adverse event [Fatal]
  - Urinary incontinence [Fatal]
  - Depressed mood [Not Recovered/Not Resolved]
  - Movement disorder [Fatal]
  - Asthenia [Not Recovered/Not Resolved]

NARRATIVE: CASE EVENT DATE: 20200213
